FAERS Safety Report 13557912 (Version 3)
Quarter: 2021Q4

REPORT INFORMATION
  Report Type: Report from Study
  Country: JP (occurrence: JP)
  Receive Date: 20170518
  Receipt Date: 20211111
  Transmission Date: 20220303
  Serious: Yes (Hospitalization, Other)
  Sender: FDA-Public Use
  Company Number: JP-VIIVHC-JP2015JPN104540AA

PATIENT
  Age: 33 Year
  Sex: Male

DRUGS (7)
  1. MARAVIROC [Suspect]
     Active Substance: MARAVIROC
     Indication: HIV infection
     Dosage: 600 MG, 1D
     Route: 048
     Dates: start: 20120802, end: 20140422
  2. MARAVIROC [Suspect]
     Active Substance: MARAVIROC
     Dosage: 300 MG, 1D
     Route: 048
     Dates: start: 20140423, end: 20141014
  3. MARAVIROC [Suspect]
     Active Substance: MARAVIROC
     Dosage: 600 MG, 1D
     Route: 048
     Dates: start: 20141015
  4. KALETRA [Suspect]
     Active Substance: LOPINAVIR\RITONAVIR
     Indication: HIV infection
     Dosage: 2 DF, BID
     Route: 048
     Dates: start: 20140423, end: 20141014
  5. TRUVADA [Suspect]
     Active Substance: EMTRICITABINE\TENOFOVIR DISOPROXIL FUMARATE
     Indication: HIV infection
     Dosage: 1 DF, 1D
     Route: 048
     Dates: start: 20120601, end: 20120604
  6. TRUVADA [Suspect]
     Active Substance: EMTRICITABINE\TENOFOVIR DISOPROXIL FUMARATE
     Dosage: 1 DF, 1D
     Route: 048
     Dates: start: 20120802
  7. TIVICAY [Concomitant]
     Active Substance: DOLUTEGRAVIR SODIUM
     Indication: HIV infection
     Dosage: 50 MG, UNK
     Route: 048
     Dates: start: 20141015

REACTIONS (4)
  - Cellulitis [Recovered/Resolved]
  - Fracture [Recovered/Resolved]
  - Hypertriglyceridaemia [Recovered/Resolved]
  - Diarrhoea [Recovered/Resolved]

NARRATIVE: CASE EVENT DATE: 20130401
